FAERS Safety Report 17501450 (Version 1)
Quarter: 2020Q1

REPORT INFORMATION
  Report Type: Spontaneous
  Country: US (occurrence: US)
  Receive Date: 20200304
  Receipt Date: 20200304
  Transmission Date: 20200409
  Serious: Yes (Other)
  Sender: FDA-Public Use
  Company Number: None

PATIENT
  Age: 88 Year
  Sex: Female
  Weight: 58.5 kg

DRUGS (2)
  1. BEOVU [Suspect]
     Active Substance: BROLUCIZUMAB-DBLL
     Indication: CHOROIDAL NEOVASCULARISATION
     Dosage: ?          OTHER ROUTE:INTRAVITREAL?
     Dates: start: 20191211, end: 20200115
  2. BEOVU [Suspect]
     Active Substance: BROLUCIZUMAB-DBLL
     Indication: AGE-RELATED MACULAR DEGENERATION
     Dosage: ?          OTHER ROUTE:INTRAVITREAL?
     Dates: start: 20191211, end: 20200115

REACTIONS (3)
  - Retinal haemorrhage [None]
  - Uveitis [None]
  - Vasculitis [None]

NARRATIVE: CASE EVENT DATE: 20200129
